FAERS Safety Report 21849442 (Version 1)
Quarter: 2023Q1

REPORT INFORMATION
  Report Type: Spontaneous
  Country: US (occurrence: US)
  Receive Date: 20230111
  Receipt Date: 20230111
  Transmission Date: 20230418
  Serious: No
  Sender: FDA-Public Use
  Company Number: US-SA-SAC20230110001118

PATIENT
  Sex: Female

DRUGS (17)
  1. DUPIXENT [Suspect]
     Active Substance: DUPILUMAB
     Indication: Asthma
     Dosage: 300 MG, QOW
     Route: 058
     Dates: start: 20211124
  2. ADVAIR HFA [Concomitant]
     Active Substance: FLUTICASONE PROPIONATE\SALMETEROL XINAFOATE
  3. ALBUTEROL SULFATE [Concomitant]
     Active Substance: ALBUTEROL SULFATE
  4. AZELAIC ACID [Concomitant]
     Active Substance: AZELAIC ACID
  5. ALBUTEROL [Concomitant]
     Active Substance: ALBUTEROL
  6. ESCITALOPRAM [Concomitant]
     Active Substance: ESCITALOPRAM OXALATE
  7. HYDROCODONE BITARTRATE AND ACETAMINOPHEN [Concomitant]
     Active Substance: ACETAMINOPHEN\HYDROCODONE BITARTRATE
  8. IBUPROFEN [Concomitant]
     Active Substance: IBUPROFEN
  9. METFORMIN [Concomitant]
     Active Substance: METFORMIN HYDROCHLORIDE
  10. NURTEC ODT [Concomitant]
     Active Substance: RIMEGEPANT SULFATE
  11. OZEMPIC [Concomitant]
     Active Substance: SEMAGLUTIDE
  12. RYVENT [Concomitant]
     Active Substance: CARBINOXAMINE MALEATE
  13. TOPIRAMATE [Concomitant]
     Active Substance: TOPIRAMATE
  14. UBRELVY [Concomitant]
     Active Substance: UBROGEPANT
  15. SUMATRIPTAN AND NAPROXEN SODIUM [Concomitant]
     Active Substance: NAPROXEN SODIUM\SUMATRIPTAN SUCCINATE
  16. NORETHINDRONE [Concomitant]
     Active Substance: NORETHINDRONE
  17. EMGALITY [Concomitant]
     Active Substance: GALCANEZUMAB-GNLM

REACTIONS (2)
  - Eye irritation [Unknown]
  - Drug ineffective [Unknown]
